FAERS Safety Report 22141423 (Version 2)
Quarter: 2023Q2

REPORT INFORMATION
  Report Type: Spontaneous
  Country: US (occurrence: US)
  Receive Date: 20230327
  Receipt Date: 20230504
  Transmission Date: 20230722
  Serious: No
  Sender: FDA-Public Use
  Company Number: US-PFIZER INC-202300119534

PATIENT
  Age: 8 Year
  Sex: Male
  Weight: 18.14 kg

DRUGS (1)
  1. GENOTROPIN [Suspect]
     Active Substance: SOMATROPIN
     Indication: Growth hormone deficiency
     Dosage: 0.9 ML, 1X/DAY
     Route: 058

REACTIONS (2)
  - Poor quality device used [Unknown]
  - Device defective [Unknown]
